FAERS Safety Report 12124177 (Version 1)
Quarter: 2016Q1

REPORT INFORMATION
  Report Type: Spontaneous
  Country: GB (occurrence: GB)
  Receive Date: 20160228
  Receipt Date: 20160228
  Transmission Date: 20160526
  Serious: Yes (Other)
  Sender: FDA-Public Use
  Company Number: GB-TEVA-636475ACC

PATIENT
  Age: 43 Year
  Sex: Female
  Weight: 76.65 kg

DRUGS (3)
  1. TRANEXAMIC ACID. [Concomitant]
     Active Substance: TRANEXAMIC ACID
  2. MIRTAZAPIN [Concomitant]
     Active Substance: MIRTAZAPINE
  3. TRIMETHOPRIM. [Suspect]
     Active Substance: TRIMETHOPRIM
     Indication: URINARY TRACT INFECTION
     Route: 048
     Dates: start: 20160201, end: 20160205

REACTIONS (2)
  - Drug withdrawal syndrome [Unknown]
  - Rash generalised [Not Recovered/Not Resolved]

NARRATIVE: CASE EVENT DATE: 20160207
